FAERS Safety Report 14891890 (Version 2)
Quarter: 2018Q2

REPORT INFORMATION
  Report Type: Spontaneous
  Country: US (occurrence: US)
  Receive Date: 20180514
  Receipt Date: 20180523
  Transmission Date: 20180711
  Serious: Yes (Death, Hospitalization, Other)
  Sender: FDA-Public Use
  Company Number: US-JNJFOC-20180517153

PATIENT
  Age: 74 Year
  Sex: Male
  Weight: 57 kg

DRUGS (5)
  1. HYDROCHLOROTHIAZIDE. [Concomitant]
     Active Substance: HYDROCHLOROTHIAZIDE
  2. IMBRUVICA [Suspect]
     Active Substance: IBRUTINIB
     Indication: MANTLE CELL LYMPHOMA
     Route: 048
     Dates: start: 20180201, end: 20180423
  3. LISINOPRIL. [Concomitant]
     Active Substance: LISINOPRIL
  4. POTASSIUM [Concomitant]
     Active Substance: POTASSIUM
  5. LOVASTATIN. [Concomitant]
     Active Substance: LOVASTATIN

REACTIONS (5)
  - Pleural effusion [Fatal]
  - Hyperuricaemia [Fatal]
  - Pulmonary embolism [Unknown]
  - Pericardial effusion [Unknown]
  - Disease progression [Fatal]

NARRATIVE: CASE EVENT DATE: 20180423
